FAERS Safety Report 25722431 (Version 2)
Quarter: 2025Q4

REPORT INFORMATION
  Report Type: Spontaneous
  Country: CA (occurrence: CA)
  Receive Date: 20250825
  Receipt Date: 20251017
  Transmission Date: 20260117
  Serious: Yes (Hospitalization, Other)
  Sender: PFIZER
  Company Number: CA-PFIZER INC-202500087844

PATIENT
  Age: 25 Year
  Sex: Female

DRUGS (3)
  1. ABRILADA [Suspect]
     Active Substance: ADALIMUMAB-AFZB
     Indication: Crohn^s disease
     Dosage: 40 MG, WEEK 0 160MGWEEK 2 80MG, 40 MG,EVERY 2 WEEKS
     Route: 058
     Dates: start: 20240426
  2. ABRILADA [Suspect]
     Active Substance: ADALIMUMAB-AFZB
     Dosage: 40 MG, WEEKLY
     Route: 058
     Dates: start: 2025
  3. ABRILADA [Suspect]
     Active Substance: ADALIMUMAB-AFZB
     Dosage: UNK
     Dates: start: 2025

REACTIONS (4)
  - Anal abscess [Unknown]
  - Therapeutic response shortened [Unknown]
  - Condition aggravated [Unknown]
  - Off label use [Unknown]

NARRATIVE: CASE EVENT DATE: 20250101
